FAERS Safety Report 7030951-3 (Version None)
Quarter: 2010Q4

REPORT INFORMATION
  Report Type: 
  Country: None (occurrence: None)
  Receive Date: 20101006
  Receipt Date: 20090914
  Transmission Date: 20110411
  Serious: Yes (Other)
  Sender: FDA-Public Use
  Company Number: US-BRISTOL-MYERS SQUIBB COMPANY-14736078

PATIENT
  Age: 57 Year
  Sex: Female

DRUGS (1)
  1. KENALOG-40 [Suspect]
     Indication: OSTEOARTHRITIS
     Route: 014

REACTIONS (1)
  - INJECTION SITE REACTION [None]
